FAERS Safety Report 14387521 (Version 2)
Quarter: 2018Q3

REPORT INFORMATION
  Report Type: Spontaneous
  Country: US (occurrence: US)
  Receive Date: 20180115
  Receipt Date: 20180702
  Transmission Date: 20181010
  Serious: Yes (Other)
  Sender: FDA-Public Use
  Company Number: US-SA-2017SA191412

PATIENT
  Age: 66 Year
  Sex: Female
  Weight: 86 kg

DRUGS (11)
  1. TAXOTERE [Suspect]
     Active Substance: DOCETAXEL
     Dosage: 146 MG,Q3W
     Route: 042
     Dates: start: 20140811, end: 20140811
  2. DOXORUBICIN [Concomitant]
     Active Substance: DOXORUBICIN
  3. CYTOXAN [Concomitant]
     Active Substance: CYCLOPHOSPHAMIDE
  4. VENTOLIN [SALBUTAMOL] [Concomitant]
     Dosage: UNK UNK,UNK
     Route: 065
     Dates: start: 199001, end: 20070906
  5. NEOSAR [Concomitant]
     Active Substance: CYCLOPHOSPHAMIDE
  6. RESTASIS [Concomitant]
     Active Substance: CYCLOSPORINE
     Dosage: UNK UNK,UNK
     Route: 065
     Dates: start: 201201
  7. ACETYLSALICYLIC ACID [Concomitant]
     Active Substance: ASPIRIN
     Dosage: UNK UNK,UNK
     Route: 065
     Dates: start: 20140620
  8. TAXOTERE [Suspect]
     Active Substance: DOCETAXEL
     Indication: BREAST CANCER FEMALE
     Dosage: 146 MG,Q3W
     Route: 042
     Dates: start: 20140414, end: 20140414
  9. FOSAMAX [Concomitant]
     Active Substance: ALENDRONATE SODIUM
  10. ADRIAMYCIN [DOXORUBICIN] [Concomitant]
  11. ARMOUR THYROID [Concomitant]
     Active Substance: THYROID, PORCINE

REACTIONS (1)
  - Alopecia [Not Recovered/Not Resolved]

NARRATIVE: CASE EVENT DATE: 20150211
